FAERS Safety Report 6602862-6 (Version None)
Quarter: 2010Q1

REPORT INFORMATION
  Report Type: 
  Country: None (occurrence: None)
  Receive Date: 20100226
  Receipt Date: 20100216
  Transmission Date: 20100710
  Serious: Yes (Other)
  Sender: FDA-Public Use
  Company Number: GB-RANBAXY-2010RR-31392

PATIENT
  Age: 12 Year
  Sex: Female
  Weight: 48 kg

DRUGS (4)
  1. FLOXACILLIN SODIUM [Suspect]
     Indication: OSTEOMYELITIS
     Dosage: 750 MG, TID
     Route: 048
     Dates: start: 19790406, end: 19790407
  2. FLOXACILLIN SODIUM [Suspect]
     Dosage: 500 MG, TID
     Route: 030
     Dates: start: 19790407, end: 19790428
  3. FUCIDINE CAP [Suspect]
     Indication: OSTEOMYELITIS
     Dosage: 500 MG, TID
     Route: 048
     Dates: start: 19790407, end: 19790421
  4. PARACETAMOL [Suspect]
     Indication: OSTEOMYELITIS
     Dosage: UNK
     Route: 048
     Dates: start: 19790406, end: 19790420

REACTIONS (1)
  - AGRANULOCYTOSIS [None]
